FAERS Safety Report 10037113 (Version 2)
Quarter: 2014Q2

REPORT INFORMATION
  Report Type: Report from Study
  Country: US (occurrence: US)
  Receive Date: 20140326
  Receipt Date: 20140609
  Transmission Date: 20141212
  Serious: Yes (Other)
  Sender: FDA-Public Use
  Company Number: US-ROCHE-1364572

PATIENT
  Sex: Female

DRUGS (12)
  1. CELLCEPT [Suspect]
     Indication: PRODUCT USED FOR UNKNOWN INDICATION
     Route: 065
  2. ACTEMRA [Suspect]
     Indication: RHEUMATOID ARTHRITIS
     Dosage: LAST DOSE RECEIVED ON: 26/MAR/2014
     Route: 042
  3. ACTEMRA [Suspect]
     Route: 042
     Dates: start: 20140226
  4. ACTEMRA [Suspect]
     Route: 042
     Dates: start: 20131212
  5. ACTEMRA [Suspect]
     Route: 042
     Dates: start: 20130911
  6. ACTEMRA [Suspect]
     Route: 042
     Dates: start: 20130710
  7. RITUXAN [Suspect]
     Indication: PRODUCT USED FOR UNKNOWN INDICATION
     Route: 065
  8. PREDNISONE [Concomitant]
     Route: 048
  9. OMEPRAZOLE [Concomitant]
     Route: 048
  10. SOLU-MEDROL [Concomitant]
     Route: 042
  11. BENADRYL (UNITED STATES) [Concomitant]
     Route: 065
  12. TYLENOL [Concomitant]
     Route: 065

REACTIONS (9)
  - Anaphylactic reaction [Unknown]
  - Hypoaesthesia [Unknown]
  - Scleroderma [Unknown]
  - Skin hyperpigmentation [Unknown]
  - Skin hypopigmentation [Unknown]
  - Atrophy [Unknown]
  - Red cell distribution width increased [Unknown]
  - Blood glucose increased [Unknown]
  - Basophil count decreased [Unknown]
